FAERS Safety Report 6148631-5 (Version None)
Quarter: 2009Q2

REPORT INFORMATION
  Report Type: 
  Country: None (occurrence: None)
  Receive Date: 20090408
  Receipt Date: 20090331
  Transmission Date: 20091009
  Serious: Yes (Other)
  Sender: FDA-Public Use
  Company Number: TR-WATSON-2009-02154

PATIENT
  Age: 21 Year
  Sex: Male

DRUGS (2)
  1. CYCLOSPORINE [Suspect]
     Indication: BEHCET'S SYNDROME
     Dosage: 4 MG/KG, DAILY
  2. AZATHIOPRINE [Suspect]
     Indication: BEHCET'S SYNDROME
     Dosage: 150 UNK, UNK

REACTIONS (1)
  - BRAIN STEM SYNDROME [None]
